FAERS Safety Report 4745221-3 (Version None)
Quarter: 2005Q3

REPORT INFORMATION
  Report Type: 
  Country: None (occurrence: None)
  Receive Date: 20050815
  Receipt Date: 20050218
  Transmission Date: 20060218
  Serious: Yes (Hospitalization)
  Sender: FDA-Public Use
  Company Number: PHRM2005FR00872

PATIENT
  Age: 64 Year
  Sex: Female
  Weight: 65 kg

DRUGS (2)
  1. GLEEVEC [Suspect]
     Indication: CHRONIC MYELOID LEUKAEMIA
     Dosage: 400 MG DAILY
     Route: 048
     Dates: start: 20040101, end: 20041201
  2. GLEEVEC [Suspect]
     Dosage: 400 MG PER DAY
     Route: 048
     Dates: start: 20041201, end: 20050201

REACTIONS (4)
  - ABNORMAL BEHAVIOUR [None]
  - DEPRESSION [None]
  - MAJOR DEPRESSION [None]
  - PSYCHOMOTOR HYPERACTIVITY [None]
